FAERS Safety Report 14933248 (Version 1)
Quarter: 2018Q2

REPORT INFORMATION
  Report Type: Spontaneous
  Country: PK (occurrence: PK)
  Receive Date: 20180524
  Receipt Date: 20180524
  Transmission Date: 20180711
  Serious: Yes (Hospitalization)
  Sender: FDA-Public Use
  Company Number: PK-ALEMBIC PHARMACUETICALS LIMITED-2018SCAL000359

PATIENT

DRUGS (2)
  1. DULOXETINE DR CAPSULE [Suspect]
     Active Substance: DULOXETINE HYDROCHLORIDE
     Dosage: 60 MILLIGRAM, QD
  2. DULOXETINE DR CAPSULE [Suspect]
     Active Substance: DULOXETINE HYDROCHLORIDE
     Indication: MAJOR DEPRESSION
     Dosage: 30 MILLIGRAM, QD

REACTIONS (8)
  - Dystonia [Unknown]
  - Trismus [Recovered/Resolved]
  - Confusional state [Recovered/Resolved]
  - Disorientation [Unknown]
  - Hypertension [Recovered/Resolved]
  - Abnormal behaviour [Recovered/Resolved]
  - Dysarthria [Recovered/Resolved]
  - Dyskinesia [Recovered/Resolved]
